FAERS Safety Report 9696689 (Version 1)
Quarter: 2013Q4

REPORT INFORMATION
  Report Type: Spontaneous
  Country: GB (occurrence: GB)
  Receive Date: 20131119
  Receipt Date: 20131119
  Transmission Date: 20140711
  Serious: Yes (Hospitalization, Other)
  Sender: FDA-Public Use
  Company Number: PHHY2013GB130068

PATIENT
  Age: 91 Year
  Sex: Female
  Weight: 48 kg

DRUGS (6)
  1. FUROSEMIDE [Suspect]
     Dosage: 40 MG
     Route: 048
     Dates: end: 20130829
  2. INDAPAMIDE [Suspect]
     Dosage: 2.5 MG
     Route: 048
     Dates: end: 20130829
  3. NIFEDIPINE [Concomitant]
     Indication: HYPERTENSION
  4. ASPIRIN [Concomitant]
     Indication: ATRIAL FIBRILLATION
     Dosage: 75 MG
  5. NEBIVOLOL [Concomitant]
     Indication: HYPERTENSION
     Dosage: 10 MG
  6. SENNA [Concomitant]
     Indication: CONSTIPATION
     Dosage: AT NIGHT

REACTIONS (4)
  - Fall [Unknown]
  - Lethargy [Unknown]
  - Hyponatraemia [Recovered/Resolved]
  - Confusional state [Recovered/Resolved]
